FAERS Safety Report 4291432-3 (Version None)
Quarter: 2004Q1

REPORT INFORMATION
  Report Type: 
  Country: None (occurrence: None)
  Receive Date: 20040210
  Receipt Date: 20040210
  Transmission Date: 20041129
  Serious: Yes (Hospitalization)
  Sender: FDA-Public Use
  Company Number: None

PATIENT
  Age: 75 Year
  Sex: Male

DRUGS (3)
  1. PRAVASTATIN [Suspect]
     Indication: ATRIAL FIBRILLATION
     Dosage: 40 MG DAILY ORAL
     Route: 048
     Dates: start: 20030101, end: 20031024
  2. LISINOPRIL [Concomitant]
  3. TAMSULOSIN [Concomitant]

REACTIONS (5)
  - ANOREXIA [None]
  - ASTHENIA [None]
  - HEPATIC ENZYME INCREASED [None]
  - PNEUMONIA [None]
  - WEIGHT DECREASED [None]
